FAERS Safety Report 8245224-0 (Version None)
Quarter: 2012Q1

REPORT INFORMATION
  Report Type: 
  Country: None (occurrence: None)
  Receive Date: 20120329
  Receipt Date: 20120317
  Transmission Date: 20120608
  Serious: Yes (Death, Hospitalization, Other)
  Sender: FDA-Public Use
  Company Number: PHHY2012DE024766

PATIENT
  Sex: Female

DRUGS (4)
  1. EVEROLIMUS [Suspect]
     Dosage: 8 PG//IL
  2. MYCOPHENOLATE MOFETIL [Suspect]
     Indication: HEART TRANSPLANT
  3. CYCLOSPORINE [Suspect]
     Indication: HEART TRANSPLANT
     Dosage: 50 PG//IL
  4. CORTICOSTEROIDS [Concomitant]

REACTIONS (20)
  - BRONCHOPULMONARY ASPERGILLOSIS [None]
  - EPSTEIN-BARR VIRUS INFECTION [None]
  - ANAEMIA [None]
  - ESCHERICHIA INFECTION [None]
  - INFECTION [None]
  - HEADACHE [None]
  - UROSEPSIS [None]
  - CEREBRAL ASPERGILLOSIS [None]
  - POST TRANSPLANT LYMPHOPROLIFERATIVE DISORDER [None]
  - PYREXIA [None]
  - PANCYTOPENIA [None]
  - FEBRILE NEUTROPENIA [None]
  - LYMPHOMA [None]
  - RENAL FAILURE ACUTE [None]
  - HISTIOCYTOSIS HAEMATOPHAGIC [None]
  - SERUM FERRITIN INCREASED [None]
  - HYPERTRIGLYCERIDAEMIA [None]
  - GENERAL PHYSICAL HEALTH DETERIORATION [None]
  - SPLENOMEGALY [None]
  - BLOOD LACTATE DEHYDROGENASE INCREASED [None]
